FAERS Safety Report 6616952-5 (Version None)
Quarter: 2010Q1

REPORT INFORMATION
  Report Type: 
  Country: None (occurrence: None)
  Receive Date: 20100301
  Receipt Date: 20100216
  Transmission Date: 20100710
  Serious: Yes (Death)
  Sender: FDA-Public Use
  Company Number: 007048

PATIENT
  Age: 41 Year
  Sex: Male

DRUGS (4)
  1. THEOPHYLLINE [Suspect]
  2. SELECTIVE BETA-2 ADRENORECEPTOR AGONISTS (BETA AGONIST) [Suspect]
  3. IMMUNE GLOBULIN INTRAVENOUS (HUMAN) [Suspect]
  4. HMG COA REDUCTASE INHIBITORS (STATINS) [Suspect]

REACTIONS (14)
  - CAPILLARY LEAK SYNDROME [None]
  - CARDIAC ARREST [None]
  - CONVULSION [None]
  - COUGH [None]
  - DIARRHOEA [None]
  - FLUID OVERLOAD [None]
  - HAEMOCONCENTRATION [None]
  - HYPOALBUMINAEMIA [None]
  - HYPOTENSION [None]
  - HYPOVOLAEMIC SHOCK [None]
  - LOSS OF CONSCIOUSNESS [None]
  - NAUSEA [None]
  - PULMONARY OEDEMA [None]
  - VOMITING [None]
